FAERS Safety Report 5654495-6 (Version None)
Quarter: 2008Q1

REPORT INFORMATION
  Report Type: 
  Country: None (occurrence: None)
  Receive Date: 20080307
  Receipt Date: 20080304
  Transmission Date: 20080703
  Serious: Yes (Other)
  Sender: FDA-Public Use
  Company Number: JP-SP-2008-00264

PATIENT
  Age: 87 Year
  Sex: Male

DRUGS (5)
  1. IMMUCYST [Suspect]
     Indication: BLADDER CANCER
     Route: 043
     Dates: start: 20080116
  2. IMMUCYST [Suspect]
     Route: 043
     Dates: start: 20080116
  3. IMMUCYST [Suspect]
     Route: 043
     Dates: start: 20080116
  4. PILSICAINIDE HYDROCHLORIDE [Concomitant]
     Route: 065
     Dates: start: 20060811
  5. LOSARTAN POTASSIUM [Concomitant]
     Route: 065
     Dates: start: 20071225, end: 20080226

REACTIONS (5)
  - ANOREXIA [None]
  - HYDRONEPHROSIS [None]
  - INCORRECT DRUG DOSAGE FORM ADMINISTERED [None]
  - PYREXIA [None]
  - SEPTIC SHOCK [None]
